FAERS Safety Report 22389536 (Version 1)
Quarter: 2023Q2

REPORT INFORMATION
  Report Type: Spontaneous
  Country: SK (occurrence: SK)
  Receive Date: 20230531
  Receipt Date: 20230531
  Transmission Date: 20230722
  Serious: Yes (Hospitalization, Other)
  Sender: FDA-Public Use
  Company Number: SK-EMA-DD-20230517-225467-124650

PATIENT
  Age: 66 Year
  Sex: Female

DRUGS (1)
  1. METHOTREXATE SODIUM [Suspect]
     Active Substance: METHOTREXATE SODIUM
     Indication: Connective tissue disorder
     Dosage: PATIENT NO LONGER REMEMBERED THE CORRECT DOSAGE, SO ADJUSTED IT ARBITRARILY

REACTIONS (8)
  - Dyspepsia [Recovered/Resolved]
  - Altered state of consciousness [Recovered/Resolved]
  - Pancytopenia [Recovered/Resolved]
  - Lower gastrointestinal haemorrhage [Recovered/Resolved]
  - COVID-19 pneumonia [Recovered/Resolved]
  - Toxicity to various agents [Recovered/Resolved]
  - Incorrect dose administered [Unknown]
  - Off label use [Unknown]
